FAERS Safety Report 15549704 (Version 1)
Quarter: 2018Q4

REPORT INFORMATION
  Report Type: Spontaneous
  Country: US (occurrence: US)
  Receive Date: 20181018
  Receipt Date: 20181018
  Transmission Date: 20190205
  Serious: Yes (Hospitalization)
  Sender: FDA-Public Use
  Company Number: None

PATIENT
  Age: 17 Year
  Sex: Female
  Weight: 43.8 kg

DRUGS (18)
  1. DAUNORUBICIN [Suspect]
     Active Substance: DAUNORUBICIN
     Dates: end: 20180227
  2. ETOPOSIDE (VP-16) [Suspect]
     Active Substance: ETOPOSIDE
     Dates: end: 20180326
  3. MESNA. [Suspect]
     Active Substance: MESNA
     Dates: end: 20180226
  4. NEULASTA [Suspect]
     Active Substance: PEGFILGRASTIM
     Dates: end: 20180328
  5. GLEEVEC [Suspect]
     Active Substance: IMATINIB MESYLATE
     Dates: end: 20180930
  6. DEXAMETHASONE. [Suspect]
     Active Substance: DEXAMETHASONE
     Dates: end: 20180906
  7. DOXORUBICIN [Suspect]
     Active Substance: DOXORUBICIN
     Dates: end: 20180904
  8. ONCASPAR [Suspect]
     Active Substance: PEGASPARGASE
     Dates: end: 20180828
  9. VINCRISTINE SULFATE. [Suspect]
     Active Substance: VINCRISTINE SULFATE
     Dates: end: 20180904
  10. CYCLOPHOSPHAMIDE (26271) [Suspect]
     Active Substance: CYCLOPHOSPHAMIDE
     Dates: end: 20180619
  11. CYTARABINE. [Suspect]
     Active Substance: CYTARABINE
     Dates: end: 20180629
  12. METHOTREXATE. [Suspect]
     Active Substance: METHOTREXATE
     Dates: end: 20180821
  13. THIOGUANINE (6-TG) [Suspect]
     Active Substance: THIOGUANINE ANHYDROUS
     Dates: end: 20180702
  14. DEXRAZOXANE. [Suspect]
     Active Substance: DEXRAZOXANE
     Dates: end: 20180904
  15. IFOSFAMIDE. [Suspect]
     Active Substance: IFOSFAMIDE
     Dates: end: 20180226
  16. LEUCOVORIN CALCIUM. [Suspect]
     Active Substance: LEUCOVORIN CALCIUM
     Dates: end: 20180226
  17. MERCAPTOPURINE. [Suspect]
     Active Substance: MERCAPTOPURINE
     Dates: end: 20180820
  18. PREDNISONE. [Suspect]
     Active Substance: PREDNISONE
     Dates: end: 20181011

REACTIONS (5)
  - Cytomegalovirus test positive [None]
  - Hypotension [None]
  - Diabetic ketoacidosis [None]
  - Febrile neutropenia [None]
  - Pancreatitis [None]

NARRATIVE: CASE EVENT DATE: 20180930
